FAERS Safety Report 6760176-8 (Version None)
Quarter: 2010Q2

REPORT INFORMATION
  Report Type: 
  Country: None (occurrence: None)
  Receive Date: 20100608
  Receipt Date: 20100527
  Transmission Date: 20101027
  Serious: Yes (Other)
  Sender: FDA-Public Use
  Company Number: US-SANOFI-AVENTIS-2010SA031250

PATIENT
  Age: 83 Year
  Sex: Male

DRUGS (5)
  1. LASIX [Suspect]
     Route: 048
     Dates: start: 20100301
  2. WARFARIN SODIUM [Suspect]
     Route: 065
     Dates: start: 20100301
  3. DIGOXIN [Suspect]
     Indication: DRUG USE FOR UNKNOWN INDICATION
     Route: 065
     Dates: start: 20100301
  4. VITAMINS [Concomitant]
  5. ALL OTHER THERAPEUTIC PRODUCTS [Concomitant]

REACTIONS (1)
  - ATRIAL FIBRILLATION [None]
